FAERS Safety Report 14904032 (Version 4)
Quarter: 2019Q1

REPORT INFORMATION
  Report Type: Report from Study
  Country: US (occurrence: US)
  Receive Date: 20180516
  Receipt Date: 20190125
  Transmission Date: 20190417
  Serious: Yes (Hospitalization)
  Sender: FDA-Public Use
  Company Number: US-ACTELION-A-NJ2018-172113

PATIENT
  Age: 27 Year
  Sex: Female

DRUGS (20)
  1. IBUPROFEN. [Concomitant]
     Active Substance: IBUPROFEN
     Dosage: 800 MG, TID
     Route: 048
     Dates: start: 20180308
  2. SUDAFED [Concomitant]
     Active Substance: PSEUDOEPHEDRINE HYDROCHLORIDE
     Dosage: 30 MG, PRN
     Route: 048
     Dates: start: 20170714
  3. 2-HYDROXYPROPYL-BETA-CYCLODEXTRIN [Concomitant]
     Dosage: 700 MG, EVERY 2 WEEKS
     Route: 042
     Dates: start: 201704
  4. ACETAMINOPHEN. [Concomitant]
     Active Substance: ACETAMINOPHEN
     Dosage: 100 MG, TID
     Route: 048
     Dates: start: 20180308
  5. 2-HYDROXYPROPYL-BETA-CYCLODEXTRIN [Concomitant]
     Dosage: 800 MG, EVERY OTHER WEEK / EVERY OTHER DAY
     Route: 042
     Dates: start: 20170714
  6. 2-HYDROXYPROPYL-BETA-CYCLODEXTRIN [Concomitant]
     Dosage: 2500 MG/KG, UNK
     Route: 042
     Dates: start: 201504
  7. LORAZEPAM. [Concomitant]
     Active Substance: LORAZEPAM
     Dosage: 1 MG, PRN
     Dates: start: 201709
  8. MIRTAZAPINE. [Concomitant]
     Active Substance: MIRTAZAPINE
     Dosage: 7.5-10 MG,
     Route: 048
  9. ATIVAN [Concomitant]
     Active Substance: LORAZEPAM
     Dosage: 1.5 MG, QPM
     Route: 048
     Dates: start: 20180308
  10. AFRIN [Concomitant]
     Active Substance: OXYMETAZOLINE
     Dosage: 1 SPRAY EACH NOSTRIL, PRN
     Route: 055
     Dates: start: 20170714
  11. ZAVESCA [Suspect]
     Active Substance: MIGLUSTAT
     Indication: NIEMANN-PICK DISEASE
     Dosage: 200 MG, TID
     Route: 048
     Dates: start: 20170717
  12. GABAPENTIN. [Concomitant]
     Active Substance: GABAPENTIN
     Dosage: 500 MG, TID
     Route: 048
     Dates: start: 20180308
  13. GABAPENTIN. [Concomitant]
     Active Substance: GABAPENTIN
     Dosage: 900-1200-900 MG,
     Route: 048
  14. FLONASE [Concomitant]
     Active Substance: FLUTICASONE PROPIONATE
     Dosage: 2 SPRAY EACH NOSTRIL, PRN
     Route: 055
     Dates: start: 20170714
  15. 2-HYDROXYPROPYL-BETA-CYCLODEXTRIN [Concomitant]
     Dosage: 1400 UNK, 8 HRS, QWEEK
     Route: 042
     Dates: start: 201703
  16. GABAPENTIN. [Concomitant]
     Active Substance: GABAPENTIN
     Dosage: 500 MG, TID
     Dates: start: 201709
  17. ACETAMINOPHEN. [Concomitant]
     Active Substance: ACETAMINOPHEN
     Dosage: 1000 MG, TID
     Dates: start: 20170920
  18. SINGULAIR [Concomitant]
     Active Substance: MONTELUKAST SODIUM
     Dosage: 10 MG, QD
     Route: 048
     Dates: start: 20170714
  19. VITAMIN D3 [Concomitant]
     Active Substance: CHOLECALCIFEROL
     Dosage: 1000 U, QD
     Route: 048
     Dates: start: 20170714
  20. 2-HYDROXYPROPYL-BETA-CYCLODEXTRIN [Concomitant]
     Dosage: 900 MG IT OR 100 MG IO
     Route: 037
     Dates: start: 201505

REACTIONS (17)
  - Central venous catheter removal [Recovered/Resolved]
  - Wound infection [Recovered/Resolved]
  - Lung infiltration [Recovered/Resolved]
  - Lethargy [Unknown]
  - Food poisoning [Recovered/Resolved]
  - Skin laceration [Recovered/Resolved]
  - Cerebrospinal fluid reservoir placement [Recovered/Resolved]
  - Vomiting [Recovered/Resolved]
  - Wound drainage [Recovered/Resolved]
  - Dehydration [Unknown]
  - Colitis [Unknown]
  - Pyrexia [Recovered/Resolved]
  - Pneumonia aspiration [Recovered/Resolved]
  - Diarrhoea [Recovered/Resolved]
  - Nausea [Unknown]
  - Gastroenteritis [Recovered/Resolved]
  - Fall [Recovered/Resolved]

NARRATIVE: CASE EVENT DATE: 20180330
